FAERS Safety Report 8814558 (Version 1)
Quarter: 2012Q4

REPORT INFORMATION
  Report Type: Spontaneous
  Country: US (occurrence: None)
  Receive Date: 20120925
  Receipt Date: 20120925
  Transmission Date: 20130627
  Serious: Yes (Life-Threatening, Other)
  Sender: FDA-Public Use
  Company Number: ADR-2012-01737

PATIENT
  Sex: Female

DRUGS (3)
  1. LIORESAL INTRATHECAL (BACLOFEN INJECTION) [Suspect]
     Indication: SPASTICITY
  2. LIORESAL INTRATHECAL (BACLOFEN INJECTION) [Suspect]
     Indication: SPINAL CORD INJURY
  3. LIORESAL (BACLOFEN) [Concomitant]

REACTIONS (7)
  - Drug ineffective [None]
  - Device breakage [None]
  - Fall [None]
  - Nervousness [None]
  - Dyspnoea [None]
  - Medical device complication [None]
  - Posture abnormal [None]
